FAERS Safety Report 8773935 (Version 2)
Quarter: 2012Q4

REPORT INFORMATION
  Report Type: 
  Country: CN (occurrence: CN)
  Receive Date: 20120908
  Receipt Date: 20120923
  Transmission Date: 20130627
  Serious: Yes (Other)
  Sender: FDA-Public Use
  Company Number: CN-ABBOTT-12P-035-0977205-00

PATIENT
  Age: 71 Year
  Sex: Female

DRUGS (8)
  1. DEPAKINE [Suspect]
     Indication: EPILEPSY
     Dosage: Daily
     Route: 048
     Dates: start: 20111010, end: 201111
  2. DEPAKINE [Suspect]
     Dosage: Daily
     Route: 048
     Dates: start: 201111, end: 20111208
  3. DEPAKINE [Suspect]
     Dosage: Daily
     Route: 048
     Dates: start: 20111209, end: 201201
  4. DEPAKINE [Suspect]
     Route: 048
     Dates: start: 201201, end: 20120612
  5. DEPAKINE [Suspect]
     Route: 048
     Dates: start: 20120613
  6. DEPAKINE [Suspect]
     Route: 048
     Dates: start: 201206, end: 20120715
  7. DEPAKINE [Suspect]
     Route: 048
     Dates: start: 20120716, end: 20120809
  8. DEPAKINE [Suspect]
     Route: 048
     Dates: start: 20120810

REACTIONS (5)
  - Eye movement disorder [Recovered/Resolved]
  - Epilepsy [Recovered/Resolved]
  - Convulsion [Recovered/Resolved]
  - Trismus [Recovered/Resolved]
  - Vomiting [Not Recovered/Not Resolved]
